FAERS Safety Report 18950380 (Version 1)
Quarter: 2021Q1

REPORT INFORMATION
  Report Type: Spontaneous
  Country: US (occurrence: US)
  Receive Date: 20210228
  Receipt Date: 20210228
  Transmission Date: 20210420
  Serious: No
  Sender: FDA-Public Use
  Company Number: US-ROCHE-2731845

PATIENT
  Sex: Female

DRUGS (6)
  1. XOLAIR [Suspect]
     Active Substance: OMALIZUMAB
  2. XOLAIR [Suspect]
     Active Substance: OMALIZUMAB
  3. XOLAIR [Suspect]
     Active Substance: OMALIZUMAB
     Indication: ASTHMA
     Dosage: 75MG/0.5ML; 1 SYRINGE EVERY 2 WEEKS; ONGOING: YES
     Route: 058
     Dates: start: 20170208
  4. XOLAIR [Suspect]
     Active Substance: OMALIZUMAB
     Dosage: 150MG/ML; 2 SYRINGES EVERY 2 WEEKS; ONGOING: YES
     Route: 058
     Dates: start: 20170208
  5. XOLAIR [Suspect]
     Active Substance: OMALIZUMAB
  6. XOLAIR [Suspect]
     Active Substance: OMALIZUMAB

REACTIONS (1)
  - Asthma [Unknown]
